FAERS Safety Report 8513729-0 (Version None)
Quarter: 2012Q3

REPORT INFORMATION
  Report Type: 
  Country: None (occurrence: None)
  Receive Date: 20120717
  Receipt Date: 20120709
  Transmission Date: 20120928
  Serious: Yes (Hospitalization, Other)
  Sender: FDA-Public Use
  Company Number: US-BAYER-2012-052643

PATIENT
  Age: 37 Year
  Sex: Female
  Weight: 56.689 kg

DRUGS (14)
  1. CYMBALTA [Concomitant]
     Dosage: 60 MG, UNK
     Route: 048
     Dates: start: 20091201, end: 20100223
  2. DROSPIRENONE AND ETHINYL ESTRADIOL [Suspect]
     Indication: CONTRACEPTION
     Dosage: UNK
     Dates: start: 20060306, end: 20100326
  3. BENAZEPRIL W/HYDROCHLOROTHIAZIDE [Concomitant]
     Dosage: UNK
     Dates: start: 20091222, end: 20100223
  4. LOTENSIN HCT [Concomitant]
  5. CALCIUM [Concomitant]
  6. YASMIN [Suspect]
  7. KLONOPIN [Concomitant]
  8. ANTIEMETICS AND ANTINAUSEANTS [Concomitant]
  9. FEXOFENADINE [Concomitant]
  10. PHENTERMINE [Concomitant]
     Indication: WEIGHT DECREASED
  11. ALLEGRA [Concomitant]
  12. BENICAR [Concomitant]
  13. HYDROCODONE [Concomitant]
  14. ADIPEX [Concomitant]

REACTIONS (14)
  - CONFUSIONAL STATE [None]
  - APHASIA [None]
  - DEEP VEIN THROMBOSIS [None]
  - GRAND MAL CONVULSION [None]
  - APRAXIA [None]
  - URINARY TRACT INFECTION [None]
  - INJURY [None]
  - PAIN [None]
  - HEMIPARESIS [None]
  - ANXIETY [None]
  - CEREBRAL INFARCTION [None]
  - CEREBRAL ARTERY THROMBOSIS [None]
  - VAGINAL HAEMORRHAGE [None]
  - HYPERTENSION [None]
